FAERS Safety Report 4322638-2 (Version None)
Quarter: 2004Q1

REPORT INFORMATION
  Report Type: 
  Country: None (occurrence: None)
  Receive Date: 20040324
  Receipt Date: 20031113
  Transmission Date: 20041129
  Serious: No
  Sender: FDA-Public Use
  Company Number: US-BRISTOL-MYERS SQUIBB COMPANY-12439220

PATIENT

DRUGS (2)
  1. SUSTIVA [Suspect]
  2. REYATAZ [Suspect]

REACTIONS (1)
  - BLOOD GLUCOSE INCREASED [None]
